FAERS Safety Report 6124538-4 (Version None)
Quarter: 2009Q1

REPORT INFORMATION
  Report Type: 
  Country: None (occurrence: None)
  Receive Date: 20090317
  Receipt Date: 20090317
  Transmission Date: 20090719
  Serious: Yes (Hospitalization)
  Sender: FDA-Public Use
  Company Number: None

PATIENT
  Age: 68 Year
  Sex: Male
  Weight: 104.3273 kg

DRUGS (3)
  1. INTEGRILIN [Suspect]
     Indication: STENT PLACEMENT
     Dates: start: 20090310, end: 20090310
  2. ASPIRIN [Concomitant]
  3. HEPARIN [Concomitant]

REACTIONS (2)
  - POST PROCEDURAL COMPLICATION [None]
  - THROMBOCYTOPENIA [None]
